FAERS Safety Report 9096551 (Version 1)
Quarter: 2013Q1

REPORT INFORMATION
  Report Type: Spontaneous
  Country: CA (occurrence: CA)
  Receive Date: 20130211
  Receipt Date: 20130211
  Transmission Date: 20140127
  Serious: Yes (Death)
  Sender: FDA-Public Use
  Company Number: PHHY2013CA012143

PATIENT
  Sex: 0

DRUGS (22)
  1. GLEEVEC [Suspect]
     Dosage: 400 MG, DAILY
  2. GLEEVEC [Suspect]
     Dosage: 400 MG, DAILY
     Route: 048
  3. CYTARABINE [Suspect]
     Dosage: 40 MG, UNK
  4. CYTARABINE [Suspect]
     Dosage: 40 MG, UNK
     Route: 039
  5. DOXORUBICIN [Suspect]
     Dosage: 30 MG/M2, UNK
     Route: 042
  6. DOXORUBICIN [Suspect]
     Dosage: 30 MG/M2, UNK
  7. HYDROCORTISONE [Suspect]
     Dosage: 15 MG, UNK
     Route: 037
  8. HYDROCORTISONE [Suspect]
     Dosage: 15 MG, UNK
  9. PREDNISONE [Suspect]
     Dosage: 10 MG, (4 EVERY 1 DAY)
     Route: 048
  10. METHOTREXATE [Suspect]
     Dosage: 4000 MG/M2, UNK
     Route: 042
  11. MERCAPTOPURINE [Suspect]
     Dosage: 50 MG/M2, UNK
     Route: 048
  12. L-ASPARAGINASE [Suspect]
     Dosage: UNK UKN, UNK
     Route: 030
  13. LEUCOVORIN [Suspect]
     Dosage: UNK UKN, UNK
  14. RADIATION THERAPY [Suspect]
     Dosage: UNK UKN, UNK
  15. VINCRISTINE [Suspect]
     Dosage: 2 MG, UNK
     Route: 042
  16. VINCRISTINE [Suspect]
     Dosage: 2 MG, UNK
  17. ALENDRONATE [Concomitant]
     Dosage: UNK UKN, UNK
  18. BACTRIM [Concomitant]
     Dosage: UNK UKN, UNK
  19. CALCIUM + VIT D [Concomitant]
     Dosage: UNK UKN, UNK
  20. FLUCONAZOLE [Concomitant]
     Dosage: UNK UKN, UNK
  21. PENTAMIDINE ISETHIONATE [Concomitant]
     Dosage: UNK UKN, UNK
  22. RISEDRONATE SODIUM [Concomitant]
     Dosage: UNK UKN, UNK

REACTIONS (1)
  - Multi-organ failure [Fatal]
